FAERS Safety Report 9570437 (Version 1)
Quarter: 2013Q3

REPORT INFORMATION
  Report Type: Spontaneous
  Country: US (occurrence: None)
  Receive Date: 20130926
  Receipt Date: 20130926
  Transmission Date: 20140515
  Serious: No
  Sender: FDA-Public Use
  Company Number: None

PATIENT
  Age: 45 Year
  Sex: Male
  Weight: 86.18 kg

DRUGS (1)
  1. OMEPRAZOLE [Suspect]
     Route: 048
     Dates: start: 20111011, end: 20130925

REACTIONS (5)
  - Discomfort [None]
  - Chromaturia [None]
  - Faeces discoloured [None]
  - Gallbladder disorder [None]
  - Burning sensation [None]
